FAERS Safety Report 10545100 (Version 6)
Quarter: 2015Q1

REPORT INFORMATION
  Report Type: Report from Study
  Country: CA (occurrence: CA)
  Receive Date: 20141027
  Receipt Date: 20150327
  Transmission Date: 20150720
  Serious: Yes (Other)
  Sender: FDA-Public Use
  Company Number: CA-PFIZER INC-2014284879

PATIENT
  Age: 72 Year
  Sex: Male
  Weight: 59 kg

DRUGS (8)
  1. FOLIC ACID. [Concomitant]
     Active Substance: FOLIC ACID
     Indication: PROPHYLAXIS
     Dosage: 5 MG 4 DAYS A WEEK
     Route: 048
     Dates: start: 20110119
  2. METHOTREXATE [Concomitant]
     Active Substance: METHOTREXATE
     Indication: RHEUMATOID ARTHRITIS
     Dosage: 10 MG, WEEKLY
     Route: 048
     Dates: start: 20111224
  3. VITAMIN C [Concomitant]
     Active Substance: ASCORBIC ACID
     Indication: ROUTINE HEALTH MAINTENANCE
     Dosage: 1000 MG, 1X/DAY
     Route: 048
     Dates: start: 20101222
  4. TOFACITINIB CITRATE [Suspect]
     Active Substance: TOFACITINIB CITRATE
     Indication: RHEUMATOID ARTHRITIS
     Dosage: 10 MG, 2X/DAY
     Route: 048
     Dates: start: 20101222, end: 20141015
  5. SPIRIVA [Concomitant]
     Active Substance: TIOTROPIUM BROMIDE MONOHYDRATE
     Indication: CHRONIC OBSTRUCTIVE PULMONARY DISEASE
     Dosage: 18 UG, DAILY AS NEEDED
     Route: 055
     Dates: start: 20101215
  6. CALCIUM [Concomitant]
     Active Substance: CALCIUM
     Indication: PROPHYLAXIS
     Dosage: 1000 MG, 1X/DAY
     Route: 048
     Dates: start: 20101222
  7. VITAMIN D [Concomitant]
     Active Substance: CHOLECALCIFEROL
     Indication: PROPHYLAXIS
     Dosage: 1600 IU, 1X/DAY
     Route: 048
     Dates: start: 20101222
  8. ACTONEL [Concomitant]
     Active Substance: RISEDRONATE SODIUM
     Indication: OSTEOARTHRITIS
     Dosage: 35 MG, WEEKLY
     Route: 048
     Dates: start: 201107

REACTIONS (1)
  - Spindle cell sarcoma [Recovered/Resolved]

NARRATIVE: CASE EVENT DATE: 20140602
